FAERS Safety Report 17889647 (Version 2)
Quarter: 2021Q4

REPORT INFORMATION
  Report Type: Spontaneous
  Country: US (occurrence: US)
  Receive Date: 20200612
  Receipt Date: 20211014
  Transmission Date: 20220304
  Serious: Yes (Hospitalization, Other)
  Sender: FDA-Public Use
  Company Number: US-MACLEODS PHARMACEUTICALS US LTD-MAC2020026781

PATIENT

DRUGS (2)
  1. OLANZAPINE [Suspect]
     Active Substance: OLANZAPINE
     Indication: Dementia Alzheimer^s type
     Dosage: 5 MILLIGRAM, QD, LOW DOSE
     Route: 065
  2. DIPHENHYDRAMINE [Suspect]
     Active Substance: DIPHENHYDRAMINE
     Indication: Dementia
     Dosage: 25 MILLIGRAM, SINGLE (ONE DOSE) (TOTAL)
     Route: 042

REACTIONS (2)
  - Delirium [Unknown]
  - Extrapyramidal disorder [Recovered/Resolved]
